FAERS Safety Report 12256784 (Version 1)
Quarter: 2016Q2

REPORT INFORMATION
  Report Type: Spontaneous
  Country: US (occurrence: US)
  Receive Date: 20160412
  Receipt Date: 20160412
  Transmission Date: 20160815
  Serious: No
  Sender: FDA-Public Use
  Company Number: US-GLAXOSMITHKLINE-US2016GSK044102

PATIENT
  Age: 88 Year
  Sex: Female

DRUGS (3)
  1. ZANTAC [Suspect]
     Active Substance: RANITIDINE HYDROCHLORIDE
     Indication: GASTROOESOPHAGEAL REFLUX DISEASE
     Dosage: 1 DF, QD
  2. OMEPRAZOLE. [Suspect]
     Active Substance: OMEPRAZOLE
     Indication: GASTROOESOPHAGEAL REFLUX DISEASE
     Dosage: UNK UNK, U
  3. PREVACID [Suspect]
     Active Substance: LANSOPRAZOLE
     Indication: GASTROOESOPHAGEAL REFLUX DISEASE
     Dosage: 15 MG, QD
     Route: 048

REACTIONS (14)
  - Fluid retention [Recovered/Resolved]
  - Sneezing [Unknown]
  - Fluid retention [Unknown]
  - Ill-defined disorder [Unknown]
  - Drug hypersensitivity [Unknown]
  - Condition aggravated [Unknown]
  - Joint swelling [Unknown]
  - Cough [Not Recovered/Not Resolved]
  - Weight increased [Recovered/Resolved]
  - Weight increased [Unknown]
  - Off label use [Unknown]
  - Cystitis [Recovered/Resolved]
  - Insomnia [Recovered/Resolved]
  - Product use issue [Unknown]
